FAERS Safety Report 7340081-9 (Version None)
Quarter: 2011Q1

REPORT INFORMATION
  Report Type: 
  Country: None (occurrence: None)
  Receive Date: 20110309
  Receipt Date: 20110303
  Transmission Date: 20110831
  Serious: Yes (Other)
  Sender: FDA-Public Use
  Company Number: PHHY2011JP10663

PATIENT
  Age: 39 Year
  Sex: Male

DRUGS (4)
  1. PREDNISOLONE [Suspect]
     Indication: RENAL TRANSPLANT
  2. SIMULECT [Suspect]
     Indication: RENAL TRANSPLANT
     Dosage: 20 MG, ONCE/SINGLE
     Route: 042
  3. CELLCEPT [Suspect]
     Indication: RENAL TRANSPLANT
     Route: 048
  4. PROGRAF [Suspect]
     Indication: RENAL TRANSPLANT

REACTIONS (4)
  - METASTASES TO LIVER [None]
  - CARCINOEMBRYONIC ANTIGEN INCREASED [None]
  - RENAL ARTERY OCCLUSION [None]
  - LARGE INTESTINE CARCINOMA [None]
